FAERS Safety Report 10667478 (Version 2)
Quarter: 2014Q4

REPORT INFORMATION
  Report Type: Report from Study
  Country: PL (occurrence: PL)
  Receive Date: 20141222
  Receipt Date: 20141222
  Transmission Date: 20150529
  Serious: Yes (Hospitalization)
  Sender: FDA-Public Use
  Company Number: PHNU2005PL04202

PATIENT
  Age: 58 Year
  Sex: Male
  Weight: 70 kg

DRUGS (4)
  1. ACLOTIN [Concomitant]
     Active Substance: TICLOPIDINE
     Indication: PRODUCT USED FOR UNKNOWN INDICATION
     Route: 048
     Dates: start: 20050604, end: 20050605
  2. BETALOC ZOK ^ASTRA^ [Concomitant]
     Active Substance: METOPROLOL SUCCINATE
     Indication: PRODUCT USED FOR UNKNOWN INDICATION
     Dosage: 1 DF, QD
     Route: 048
     Dates: start: 20050604, end: 20050605
  3. LESCOL XL [Suspect]
     Active Substance: FLUVASTATIN SODIUM
     Indication: PRODUCT USED FOR UNKNOWN INDICATION
     Dosage: 80 MG, QD
     Route: 048
     Dates: start: 20050602, end: 20050910
  4. ACARD [Concomitant]
     Active Substance: ASPIRIN
     Indication: PRODUCT USED FOR UNKNOWN INDICATION
     Dosage: 1 DF, QD
     Route: 048
     Dates: start: 20050604, end: 20050605

REACTIONS (6)
  - Blood cholesterol increased [Unknown]
  - High density lipoprotein increased [Unknown]
  - Low density lipoprotein increased [Unknown]
  - Dyspnoea [Not Recovered/Not Resolved]
  - Blood creatine phosphokinase MB increased [Unknown]
  - Troponin increased [Unknown]

NARRATIVE: CASE EVENT DATE: 20050605
